FAERS Safety Report 5194379-3 (Version None)
Quarter: 2006Q4

REPORT INFORMATION
  Report Type: 
  Country: None (occurrence: None)
  Receive Date: 20061228
  Receipt Date: 20061219
  Transmission Date: 20070319
  Serious: Yes (Hospitalization)
  Sender: FDA-Public Use
  Company Number: FR-PFIZER INC-2006154947

PATIENT
  Age: 21 Year
  Sex: Female

DRUGS (6)
  1. SULFASALAZINE [Suspect]
     Route: 048
     Dates: start: 20060822, end: 20060929
  2. OROKEN [Suspect]
     Indication: PHARYNGOLARYNGEAL PAIN
     Route: 048
     Dates: start: 20060919, end: 20060927
  3. MIRENA [Concomitant]
     Route: 050
  4. PREDNISOLONE [Concomitant]
  5. AMOXICILLIN [Concomitant]
  6. FLUCONAZOLE [Concomitant]

REACTIONS (6)
  - FACE OEDEMA [None]
  - HEPATITIS [None]
  - HYPERSENSITIVITY [None]
  - PRURITUS [None]
  - PYREXIA [None]
  - RASH [None]
